FAERS Safety Report 25891511 (Version 1)
Quarter: 2025Q4

REPORT INFORMATION
  Report Type: Spontaneous
  Country: GB (occurrence: GB)
  Receive Date: 20251007
  Receipt Date: 20251007
  Transmission Date: 20260117
  Serious: Yes (Other)
  Sender: MYLAN
  Company Number: GB-MHRA-TPP38911748C1874560YC1759337480267

PATIENT
  Age: 82 Year
  Sex: Female
  Weight: 84 kg

DRUGS (52)
  1. APIXABAN [Suspect]
     Active Substance: APIXABAN
     Indication: Ill-defined disorder
     Dosage: 1 DOSAGE FORM, BID (TAKE ONE TWICE DAILY)
     Dates: start: 20250909
  2. APIXABAN [Suspect]
     Active Substance: APIXABAN
     Dosage: 1 DOSAGE FORM, BID (TAKE ONE TWICE DAILY)
     Route: 065
     Dates: start: 20250909
  3. APIXABAN [Suspect]
     Active Substance: APIXABAN
     Dosage: 1 DOSAGE FORM, BID (TAKE ONE TWICE DAILY)
     Route: 065
     Dates: start: 20250909
  4. APIXABAN [Suspect]
     Active Substance: APIXABAN
     Dosage: 1 DOSAGE FORM, BID (TAKE ONE TWICE DAILY)
     Dates: start: 20250909
  5. BISOPROLOL [Concomitant]
     Active Substance: BISOPROLOL
     Indication: Ill-defined disorder
     Dosage: 1 DOSAGE FORM, PRN (TAKE ONE DAILY FI NEEDED  )
  6. BISOPROLOL [Concomitant]
     Active Substance: BISOPROLOL
     Dosage: 1 DOSAGE FORM, PRN (TAKE ONE DAILY FI NEEDED  )
     Route: 065
  7. BISOPROLOL [Concomitant]
     Active Substance: BISOPROLOL
     Dosage: 1 DOSAGE FORM, PRN (TAKE ONE DAILY FI NEEDED  )
     Route: 065
  8. BISOPROLOL [Concomitant]
     Active Substance: BISOPROLOL
     Dosage: 1 DOSAGE FORM, PRN (TAKE ONE DAILY FI NEEDED  )
  9. FINASTERIDE [Concomitant]
     Active Substance: FINASTERIDE
     Indication: Ill-defined disorder
     Dosage: 1 DOSAGE FORM, QD (AKE ONE DAILY)
     Dates: start: 20250118
  10. FINASTERIDE [Concomitant]
     Active Substance: FINASTERIDE
     Dosage: 1 DOSAGE FORM, QD (AKE ONE DAILY)
     Route: 065
     Dates: start: 20250118
  11. FINASTERIDE [Concomitant]
     Active Substance: FINASTERIDE
     Dosage: 1 DOSAGE FORM, QD (AKE ONE DAILY)
     Route: 065
     Dates: start: 20250118
  12. FINASTERIDE [Concomitant]
     Active Substance: FINASTERIDE
     Dosage: 1 DOSAGE FORM, QD (AKE ONE DAILY)
     Dates: start: 20250118
  13. NITROGLYCERIN [Concomitant]
     Active Substance: NITROGLYCERIN
     Indication: Ill-defined disorder
     Dosage: 1 DOSAGE FORM, PRN (ONE PUFF AS NEEDED)
  14. NITROGLYCERIN [Concomitant]
     Active Substance: NITROGLYCERIN
     Dosage: 1 DOSAGE FORM, PRN (ONE PUFF AS NEEDED)
     Route: 065
  15. NITROGLYCERIN [Concomitant]
     Active Substance: NITROGLYCERIN
     Dosage: 1 DOSAGE FORM, PRN (ONE PUFF AS NEEDED)
     Route: 065
  16. NITROGLYCERIN [Concomitant]
     Active Substance: NITROGLYCERIN
     Dosage: 1 DOSAGE FORM, PRN (ONE PUFF AS NEEDED)
  17. ASPIRIN [Concomitant]
     Active Substance: ASPIRIN
     Indication: Ill-defined disorder
     Dosage: 1 DOSAGE FORM, QD (TAKE 1 TAB DAILY)
     Dates: start: 20250131, end: 20250909
  18. ASPIRIN [Concomitant]
     Active Substance: ASPIRIN
     Dosage: 1 DOSAGE FORM, QD (TAKE 1 TAB DAILY)
     Route: 065
     Dates: start: 20250131, end: 20250909
  19. ASPIRIN [Concomitant]
     Active Substance: ASPIRIN
     Dosage: 1 DOSAGE FORM, QD (TAKE 1 TAB DAILY)
     Route: 065
     Dates: start: 20250131, end: 20250909
  20. ASPIRIN [Concomitant]
     Active Substance: ASPIRIN
     Dosage: 1 DOSAGE FORM, QD (TAKE 1 TAB DAILY)
     Dates: start: 20250131, end: 20250909
  21. DAPAGLIFLOZIN [Concomitant]
     Active Substance: DAPAGLIFLOZIN
     Indication: Ill-defined disorder
     Dosage: 1 DOSAGE FORM, AM (AKE ONE IN THE MORNING)
     Dates: start: 20250131
  22. DAPAGLIFLOZIN [Concomitant]
     Active Substance: DAPAGLIFLOZIN
     Dosage: 1 DOSAGE FORM, AM (AKE ONE IN THE MORNING)
     Route: 065
     Dates: start: 20250131
  23. DAPAGLIFLOZIN [Concomitant]
     Active Substance: DAPAGLIFLOZIN
     Dosage: 1 DOSAGE FORM, AM (AKE ONE IN THE MORNING)
     Route: 065
     Dates: start: 20250131
  24. DAPAGLIFLOZIN [Concomitant]
     Active Substance: DAPAGLIFLOZIN
     Dosage: 1 DOSAGE FORM, AM (AKE ONE IN THE MORNING)
     Dates: start: 20250131
  25. ESTRADERM [Concomitant]
     Active Substance: ESTRADIOL
     Indication: Ill-defined disorder
     Dosage: 1 DOSAGE FORM, BIWEEKLY (APPLY ONE TWICE WEEKLY - PLEASE MONITOR BP)
     Dates: start: 20250131
  26. ESTRADERM [Concomitant]
     Active Substance: ESTRADIOL
     Dosage: 1 DOSAGE FORM, BIWEEKLY (APPLY ONE TWICE WEEKLY - PLEASE MONITOR BP)
     Route: 065
     Dates: start: 20250131
  27. ESTRADERM [Concomitant]
     Active Substance: ESTRADIOL
     Dosage: 1 DOSAGE FORM, BIWEEKLY (APPLY ONE TWICE WEEKLY - PLEASE MONITOR BP)
     Route: 065
     Dates: start: 20250131
  28. ESTRADERM [Concomitant]
     Active Substance: ESTRADIOL
     Dosage: 1 DOSAGE FORM, BIWEEKLY (APPLY ONE TWICE WEEKLY - PLEASE MONITOR BP)
     Dates: start: 20250131
  29. LOSARTAN [Concomitant]
     Active Substance: LOSARTAN
     Indication: Ill-defined disorder
     Dosage: 1 DOSAGE FORM, QD (TAKE ONE DAILY)
     Dates: start: 20250131
  30. LOSARTAN [Concomitant]
     Active Substance: LOSARTAN
     Dosage: 1 DOSAGE FORM, QD (TAKE ONE DAILY)
     Route: 065
     Dates: start: 20250131
  31. LOSARTAN [Concomitant]
     Active Substance: LOSARTAN
     Dosage: 1 DOSAGE FORM, QD (TAKE ONE DAILY)
     Route: 065
     Dates: start: 20250131
  32. LOSARTAN [Concomitant]
     Active Substance: LOSARTAN
     Dosage: 1 DOSAGE FORM, QD (TAKE ONE DAILY)
     Dates: start: 20250131
  33. PANTOPRAZOLE [Concomitant]
     Active Substance: PANTOPRAZOLE
     Indication: Ill-defined disorder
     Dosage: 1 DOSAGE FORM, QD (TAKE ONE DAILY)
     Dates: start: 20250131
  34. PANTOPRAZOLE [Concomitant]
     Active Substance: PANTOPRAZOLE
     Dosage: 1 DOSAGE FORM, QD (TAKE ONE DAILY)
     Route: 065
     Dates: start: 20250131
  35. PANTOPRAZOLE [Concomitant]
     Active Substance: PANTOPRAZOLE
     Dosage: 1 DOSAGE FORM, QD (TAKE ONE DAILY)
     Route: 065
     Dates: start: 20250131
  36. PANTOPRAZOLE [Concomitant]
     Active Substance: PANTOPRAZOLE
     Dosage: 1 DOSAGE FORM, QD (TAKE ONE DAILY)
     Dates: start: 20250131
  37. PRAVASTATIN [Concomitant]
     Active Substance: PRAVASTATIN
     Indication: Ill-defined disorder
     Dosage: 1 DOSAGE FORM, PM (TAKE ONE AT NIGHT  )
     Dates: start: 20250131
  38. PRAVASTATIN [Concomitant]
     Active Substance: PRAVASTATIN
     Dosage: 1 DOSAGE FORM, PM (TAKE ONE AT NIGHT  )
     Route: 065
     Dates: start: 20250131
  39. PRAVASTATIN [Concomitant]
     Active Substance: PRAVASTATIN
     Dosage: 1 DOSAGE FORM, PM (TAKE ONE AT NIGHT  )
     Route: 065
     Dates: start: 20250131
  40. PRAVASTATIN [Concomitant]
     Active Substance: PRAVASTATIN
     Dosage: 1 DOSAGE FORM, PM (TAKE ONE AT NIGHT  )
     Dates: start: 20250131
  41. TICAGRELOR [Concomitant]
     Active Substance: TICAGRELOR
     Indication: Ill-defined disorder
     Dosage: 1 DOSAGE FORM, BID (TAKE ONE TWICE DAILY FIR 1 YEAR()
     Dates: start: 20250131, end: 20250714
  42. TICAGRELOR [Concomitant]
     Active Substance: TICAGRELOR
     Dosage: 1 DOSAGE FORM, BID (TAKE ONE TWICE DAILY FIR 1 YEAR()
     Route: 065
     Dates: start: 20250131, end: 20250714
  43. TICAGRELOR [Concomitant]
     Active Substance: TICAGRELOR
     Dosage: 1 DOSAGE FORM, BID (TAKE ONE TWICE DAILY FIR 1 YEAR()
     Route: 065
     Dates: start: 20250131, end: 20250714
  44. TICAGRELOR [Concomitant]
     Active Substance: TICAGRELOR
     Dosage: 1 DOSAGE FORM, BID (TAKE ONE TWICE DAILY FIR 1 YEAR()
     Dates: start: 20250131, end: 20250714
  45. METOPROLOL TARTRATE [Concomitant]
     Active Substance: METOPROLOL TARTRATE
     Indication: Ill-defined disorder
     Dosage: 1 DOSAGE FORM, QD (TAKE ONE DAILY)
     Dates: start: 20250228, end: 20250813
  46. METOPROLOL TARTRATE [Concomitant]
     Active Substance: METOPROLOL TARTRATE
     Dosage: 1 DOSAGE FORM, QD (TAKE ONE DAILY)
     Route: 065
     Dates: start: 20250228, end: 20250813
  47. METOPROLOL TARTRATE [Concomitant]
     Active Substance: METOPROLOL TARTRATE
     Dosage: 1 DOSAGE FORM, QD (TAKE ONE DAILY)
     Route: 065
     Dates: start: 20250228, end: 20250813
  48. METOPROLOL TARTRATE [Concomitant]
     Active Substance: METOPROLOL TARTRATE
     Dosage: 1 DOSAGE FORM, QD (TAKE ONE DAILY)
     Dates: start: 20250228, end: 20250813
  49. EDOXABAN [Concomitant]
     Active Substance: EDOXABAN
     Indication: Ill-defined disorder
     Dosage: 1 DOSAGE FORM, QD (TAKE ONE DAILY)
     Dates: start: 20251001
  50. EDOXABAN [Concomitant]
     Active Substance: EDOXABAN
     Dosage: 1 DOSAGE FORM, QD (TAKE ONE DAILY)
     Route: 065
     Dates: start: 20251001
  51. EDOXABAN [Concomitant]
     Active Substance: EDOXABAN
     Dosage: 1 DOSAGE FORM, QD (TAKE ONE DAILY)
     Route: 065
     Dates: start: 20251001
  52. EDOXABAN [Concomitant]
     Active Substance: EDOXABAN
     Dosage: 1 DOSAGE FORM, QD (TAKE ONE DAILY)
     Dates: start: 20251001

REACTIONS (1)
  - Gastrooesophageal reflux disease [Not Recovered/Not Resolved]
